FAERS Safety Report 7542628-6 (Version None)
Quarter: 2011Q2

REPORT INFORMATION
  Report Type: 
  Country: None (occurrence: None)
  Receive Date: 20110613
  Receipt Date: 20110603
  Transmission Date: 20111010
  Serious: Yes (Hospitalization)
  Sender: FDA-Public Use
  Company Number: PHHY2011GB49842

PATIENT
  Sex: Female

DRUGS (4)
  1. METHADONE HCL [Suspect]
     Indication: EPILEPSY
     Route: 048
  2. LAMOTRIGINE [Suspect]
     Dosage: 20 DF, (ONE GRAM IN QUANTITY)
  3. METHADONE HCL [Suspect]
     Dosage: 10 ML, UNK
  4. ALCOHOL [Suspect]
     Dosage: 2 L, UNK

REACTIONS (9)
  - HYPERTONIA [None]
  - OVERDOSE [None]
  - ATAXIA [None]
  - NERVOUS SYSTEM DISORDER [None]
  - CLONUS [None]
  - GRAND MAL CONVULSION [None]
  - CEREBELLAR SYNDROME [None]
  - SOMNOLENCE [None]
  - HYPERREFLEXIA [None]
